FAERS Safety Report 5624710-3 (Version None)
Quarter: 2008Q1

REPORT INFORMATION
  Report Type: 
  Country: None (occurrence: None)
  Receive Date: 20080213
  Receipt Date: 20080205
  Transmission Date: 20080703
  Serious: Yes (Hospitalization)
  Sender: FDA-Public Use
  Company Number: B0507563A

PATIENT
  Age: 65 Year
  Sex: Female

DRUGS (2)
  1. SUMATRIPTAN SUCCINATE [Suspect]
     Indication: HEMICEPHALALGIA
     Route: 058
     Dates: start: 20070328, end: 20070328
  2. SELOKEN [Concomitant]

REACTIONS (4)
  - CONVULSION [None]
  - EYE MOVEMENT DISORDER [None]
  - LOSS OF CONSCIOUSNESS [None]
  - MUSCLE SPASMS [None]
